FAERS Safety Report 24699782 (Version 1)
Quarter: 2024Q4

REPORT INFORMATION
  Report Type: Spontaneous
  Country: US (occurrence: US)
  Receive Date: 20241205
  Receipt Date: 20241205
  Transmission Date: 20250115
  Serious: No
  Sender: STRIDES
  Company Number: US-STRIDES ARCOLAB LIMITED-2024SP014763

PATIENT
  Age: 18 Year
  Sex: Female

DRUGS (9)
  1. LEVETIRACETAM [Suspect]
     Active Substance: LEVETIRACETAM
     Indication: Generalised tonic-clonic seizure
     Dosage: UNK
     Route: 065
  2. LEVETIRACETAM [Suspect]
     Active Substance: LEVETIRACETAM
     Indication: Reversible cerebral vasoconstriction syndrome
     Dosage: 500 MILLIGRAM, BID
     Route: 065
  3. CEFTRIAXONE [Concomitant]
     Active Substance: CEFTRIAXONE
     Indication: Sepsis
     Dosage: UNK
     Route: 065
  4. CEFTRIAXONE [Concomitant]
     Active Substance: CEFTRIAXONE
     Indication: Pyelonephritis
  5. CEPHALEXIN [Concomitant]
     Active Substance: CEPHALEXIN
     Indication: Sepsis
     Dosage: UNK
     Route: 048
  6. CEPHALEXIN [Concomitant]
     Active Substance: CEPHALEXIN
     Indication: Pyelonephritis
  7. MAGNESIUM [Concomitant]
     Active Substance: MAGNESIUM
     Indication: Reversible cerebral vasoconstriction syndrome
     Dosage: UNK
     Route: 041
  8. MAGNESIUM [Concomitant]
     Active Substance: MAGNESIUM
     Indication: Generalised tonic-clonic seizure
  9. NIMODIPINE [Concomitant]
     Active Substance: NIMODIPINE
     Indication: Reversible cerebral vasoconstriction syndrome
     Dosage: UNK
     Route: 065

REACTIONS (1)
  - Off label use [Unknown]
